FAERS Safety Report 11462450 (Version 2)
Quarter: 2015Q3

REPORT INFORMATION
  Report Type: Spontaneous
  Country: US (occurrence: US)
  Receive Date: 20150831
  Receipt Date: 20150903
  Transmission Date: 20151125
  Serious: No
  Sender: FDA-Public Use
  Company Number: US-ELI_LILLY_AND_COMPANY-US201009001721

PATIENT
  Age: 63 Year
  Sex: Female

DRUGS (4)
  1. HUMALOG [Suspect]
     Active Substance: INSULIN LISPRO
     Indication: DIABETES MELLITUS
     Dosage: 10 U, UNKNOWN
     Dates: start: 20080907
  2. LANTUS [Concomitant]
     Active Substance: INSULIN GLARGINE
     Indication: DIABETES MELLITUS
  3. HUMALOG [Suspect]
     Active Substance: INSULIN LISPRO
     Dosage: UNK, AS NEEDED
     Dates: start: 20080907
  4. CYMBALTA [Suspect]
     Active Substance: DULOXETINE HYDROCHLORIDE
     Indication: DEPRESSION
     Dosage: 60 MG, 2/D
     Dates: start: 20060907

REACTIONS (11)
  - Chest pain [Unknown]
  - Carotid artery stenosis [Unknown]
  - Pain in extremity [Not Recovered/Not Resolved]
  - Cardiac murmur [Unknown]
  - Hyperhidrosis [Not Recovered/Not Resolved]
  - Cold sweat [Not Recovered/Not Resolved]
  - Rash [Not Recovered/Not Resolved]
  - Dyspnoea [Not Recovered/Not Resolved]
  - Cardiac disorder [Unknown]
  - Aortic disorder [Unknown]
  - Hormone level abnormal [Not Recovered/Not Resolved]

NARRATIVE: CASE EVENT DATE: 2009
